FAERS Safety Report 4975719-4 (Version None)
Quarter: 2006Q1

REPORT INFORMATION
  Report Type: 
  Country: None (occurrence: None)
  Receive Date: 20060222
  Receipt Date: 20051123
  Transmission Date: 20060701
  Serious: Yes (Other)
  Sender: FDA-Public Use
  Company Number: HQWYE773330NOV05

PATIENT
  Age: 55 Year
  Sex: Female
  Weight: 50 kg

DRUGS (14)
  1. PROTONIX [Suspect]
     Indication: DYSPHAGIA
     Dosage: ORAL
     Route: 048
     Dates: start: 20050101, end: 20050101
  2. PROTONIX [Suspect]
     Indication: OESOPHAGEAL STENOSIS
     Dosage: ORAL
     Route: 048
     Dates: start: 20050101, end: 20050101
  3. PROTONIX [Suspect]
     Indication: OESOPHAGITIS
     Dosage: ORAL
     Route: 048
     Dates: start: 20050101, end: 20050101
  4. NEXIUM [Suspect]
     Indication: DYSPHAGIA
     Dates: start: 20050101, end: 20050101
  5. NEXIUM [Suspect]
     Indication: OESOPHAGEAL STENOSIS
     Dates: start: 20050101, end: 20050101
  6. NEXIUM [Suspect]
     Indication: OESOPHAGITIS
     Dates: start: 20050101, end: 20050101
  7. PREVACID [Suspect]
     Indication: DYSPHAGIA
     Dosage: 30 MG 2X PER 1 DAY, ORAL
     Route: 048
     Dates: start: 20050101, end: 20050201
  8. PREVACID [Suspect]
     Indication: OESOPHAGEAL STENOSIS
     Dosage: 30 MG 2X PER 1 DAY, ORAL
     Route: 048
     Dates: start: 20050101, end: 20050201
  9. PREVACID [Suspect]
     Indication: OESOPHAGITIS
     Dosage: 30 MG 2X PER 1 DAY, ORAL
     Route: 048
     Dates: start: 20050101, end: 20050201
  10. ZYRTEC - D (CETIRIZINE/PSEUDOEPHEDRINE) [Concomitant]
  11. IMDUR [Concomitant]
  12. CARDIZEM CD [Concomitant]
  13. ACYCLOVIR [Concomitant]
  14. XANAX [Concomitant]

REACTIONS (1)
  - THROAT TIGHTNESS [None]
